FAERS Safety Report 14377261 (Version 1)
Quarter: 2018Q1

REPORT INFORMATION
  Report Type: Spontaneous
  Country: US (occurrence: US)
  Receive Date: 20180111
  Receipt Date: 20180111
  Transmission Date: 20180509
  Serious: No
  Sender: FDA-Public Use
  Company Number: None

PATIENT
  Sex: Female

DRUGS (3)
  1. HUMIRA [Suspect]
     Active Substance: ADALIMUMAB
     Indication: PRODUCT USED FOR UNKNOWN INDICATION
     Route: 058
     Dates: start: 201607
  2. COAL TAR-TOPICAL [Concomitant]
  3. METHOTREXATE UNKNOWN GENERIC [Suspect]
     Active Substance: METHOTREXATE

REACTIONS (4)
  - Drug ineffective [None]
  - Skin ulcer [None]
  - Psoriasis [None]
  - Adverse drug reaction [None]
